FAERS Safety Report 25841545 (Version 2)
Quarter: 2025Q4

REPORT INFORMATION
  Report Type: Report from Study
  Country: US (occurrence: US)
  Receive Date: 20250924
  Receipt Date: 20251227
  Transmission Date: 20260118
  Serious: No
  Sender: NOVARTIS
  Company Number: US-002147023-NVSC2025US149185

PATIENT
  Sex: Male
  Weight: 82.55 kg

DRUGS (1)
  1. VANRAFIA [Suspect]
     Active Substance: ATRASENTAN HYDROCHLORIDE
     Indication: Haematuria
     Dosage: 0.75 MG, QD
     Route: 048
     Dates: start: 20250904

REACTIONS (4)
  - Eye swelling [Unknown]
  - Hordeolum [Unknown]
  - Product dose omission issue [Unknown]
  - Protein total abnormal [Unknown]
